FAERS Safety Report 18826759 (Version 1)
Quarter: 2021Q1

REPORT INFORMATION
  Report Type: Spontaneous
  Country: US (occurrence: US)
  Receive Date: 20210201
  Receipt Date: 20210201
  Transmission Date: 20210419
  Serious: No
  Sender: FDA-Public Use
  Company Number: US-ABBVIE-20K-163-3413597-00

PATIENT
  Age: 31 Year
  Sex: Male
  Weight: 77.18 kg

DRUGS (3)
  1. HUMIRA [Suspect]
     Active Substance: ADALIMUMAB
     Indication: COLITIS ULCERATIVE
     Route: 058
     Dates: start: 202005
  2. UCERIS (NON?ABBVIE) [Concomitant]
     Indication: COLITIS ULCERATIVE
  3. MESALAMINE (NON?ABBVIE) [Concomitant]
     Indication: COLITIS ULCERATIVE

REACTIONS (4)
  - Immunodeficiency [Not Recovered/Not Resolved]
  - Liquid product physical issue [Unknown]
  - Fear [Not Recovered/Not Resolved]
  - Hepatic enzyme increased [Not Recovered/Not Resolved]

NARRATIVE: CASE EVENT DATE: 202005
